FAERS Safety Report 7888798-1 (Version None)
Quarter: 2011Q4

REPORT INFORMATION
  Report Type: 
  Country: None (occurrence: None)
  Receive Date: 20111031
  Receipt Date: 20111020
  Transmission Date: 20120403
  Serious: Yes (Death)
  Sender: FDA-Public Use
  Company Number: 2011SP046239

PATIENT
  Age: 73 Year
  Sex: Female

DRUGS (3)
  1. SYNTHROID [Concomitant]
  2. STEROIDS [Suspect]
     Indication: BRAIN OEDEMA
  3. TEMODAR [Suspect]
     Indication: GLIOBLASTOMA
     Dosage: 75 MG/M2; PO
     Route: 048
     Dates: start: 20100101, end: 20100101

REACTIONS (3)
  - SKIN DISCOLOURATION [None]
  - PRURITUS [None]
  - FEELING ABNORMAL [None]
